FAERS Safety Report 23717407 (Version 4)
Quarter: 2024Q4

REPORT INFORMATION
  Report Type: Spontaneous
  Country: IT (occurrence: IT)
  Receive Date: 20240408
  Receipt Date: 20241108
  Transmission Date: 20250114
  Serious: Yes (Other)
  Sender: CELLTRION
  Company Number: IT-CELLTRION INC.-2024IT008199

PATIENT

DRUGS (23)
  1. TRASTUZUMAB [Suspect]
     Active Substance: TRASTUZUMAB
     Indication: Triple positive breast cancer
     Dosage: LAST LINE TREATMENT, AFTER 11 YEARS BY DIAGNOSIS PACLITAXEL + TRASTUZUMAB FOR TWELVE CYCLES. (UNK, 1
     Route: 065
     Dates: start: 2020
  2. TRASTUZUMAB [Suspect]
     Active Substance: TRASTUZUMAB
     Indication: Invasive ductal breast carcinoma
     Dosage: UNK
     Route: 065
  3. TRASTUZUMAB [Suspect]
     Active Substance: TRASTUZUMAB
     Indication: Metastases to lymph nodes
     Dosage: UNK, 12 CYCLES
     Route: 065
  4. TRASTUZUMAB [Suspect]
     Active Substance: TRASTUZUMAB
     Indication: HER2 positive breast cancer
     Dosage: UNK
     Dates: start: 2020
  5. TRASTUZUMAB [Suspect]
     Active Substance: TRASTUZUMAB
     Indication: Metastases to central nervous system
     Dosage: UNK
     Dates: start: 2020
  6. TRASTUZUMAB [Suspect]
     Active Substance: TRASTUZUMAB
     Indication: Human epidermal growth factor receptor positive
     Dosage: UNK
  7. TRASTUZUMAB [Suspect]
     Active Substance: TRASTUZUMAB
     Indication: Breast cancer
     Dosage: UNK, FOURTH LINE TREATMENT
     Route: 065
  8. TRASTUZUMAB [Suspect]
     Active Substance: TRASTUZUMAB
     Indication: Invasive ductal breast carcinoma
     Dosage: THE PATIENT UNDERWENT A DOCETAXEL/TRASTUZUMAB FIRST-LINE TREATMENT FOR 6 CYCLES FOLLOWED BY FURTHER
  9. PACLITAXEL [Suspect]
     Active Substance: PACLITAXEL
     Indication: Triple positive breast cancer
     Dosage: LAST LINE TREATMENT, AFTER 11 YEARS BY DIAGNOSIS PACLITAXEL + TRASTUZUMAB FOR TWELVE CYCLES. (UNK, 1
     Route: 065
     Dates: start: 2020
  10. PACLITAXEL [Suspect]
     Active Substance: PACLITAXEL
     Indication: HER2 positive breast cancer
     Dosage: UNK, 12 CYCLES
     Route: 065
  11. PACLITAXEL [Suspect]
     Active Substance: PACLITAXEL
     Indication: Invasive ductal breast carcinoma
     Dosage: UNK, FOURTH LINE TREATMENT
     Route: 065
  12. VINORELBINE TARTRATE [Suspect]
     Active Substance: VINORELBINE TARTRATE
     Indication: Invasive ductal breast carcinoma
     Dosage: UNK, THIRD LINE TREATMENT
     Route: 065
  13. LAPATINIB [Concomitant]
     Active Substance: LAPATINIB
     Indication: Lymphadenopathy
     Dosage: UNK
     Route: 065
  14. LETROZOLE [Concomitant]
     Active Substance: LETROZOLE
  15. CAPECITABINE [Concomitant]
     Active Substance: CAPECITABINE
     Indication: Lymphadenopathy
     Dosage: UNK
     Route: 065
  16. FULVESTRANT [Concomitant]
     Active Substance: FULVESTRANT
  17. VINORELBINE [Concomitant]
     Active Substance: VINORELBINE TARTRATE
     Indication: HER2 positive breast cancer
     Dosage: UNK
     Route: 065
  18. DOCETAXEL [Concomitant]
     Active Substance: DOCETAXEL
     Indication: HER2 positive breast cancer
     Route: 065
  19. PACLITAXEL [Concomitant]
     Active Substance: PACLITAXEL
     Indication: Metastases to central nervous system
     Dosage: UNK
     Dates: start: 2020
  20. PACLITAXEL [Concomitant]
     Active Substance: PACLITAXEL
     Indication: Invasive ductal breast carcinoma
  21. PACLITAXEL [Concomitant]
     Active Substance: PACLITAXEL
     Indication: Metastases to lymph nodes
  22. PACLITAXEL [Concomitant]
     Active Substance: PACLITAXEL
     Indication: Triple positive breast cancer
  23. TRASTUZUMAB EMTANSINE [Concomitant]
     Active Substance: TRASTUZUMAB EMTANSINE
     Dosage: UNK
     Route: 065

REACTIONS (4)
  - Breast cancer metastatic [Unknown]
  - Cardiotoxicity [Unknown]
  - Systolic dysfunction [Unknown]
  - Ejection fraction decreased [Not Recovered/Not Resolved]

NARRATIVE: CASE EVENT DATE: 20200101
